FAERS Safety Report 8520941-3 (Version None)
Quarter: 2012Q3

REPORT INFORMATION
  Report Type: 
  Country: None (occurrence: None)
  Receive Date: 20120719
  Receipt Date: 20120702
  Transmission Date: 20120928
  Serious: No
  Sender: FDA-Public Use
  Company Number: US-009507513-1207USA006265

PATIENT

DRUGS (1)
  1. MEVACOR [Suspect]
     Dosage: UNK
     Route: 048

REACTIONS (1)
  - NEUROPATHY PERIPHERAL [None]
